FAERS Safety Report 6732637-9 (Version None)
Quarter: 2010Q2

REPORT INFORMATION
  Report Type: 
  Country: None (occurrence: None)
  Receive Date: 20100517
  Receipt Date: 20100430
  Transmission Date: 20101027
  Serious: Yes (Hospitalization, Other)
  Sender: FDA-Public Use
  Company Number: 2010SCPR000376

PATIENT
  Age: 33 Year
  Sex: Male

DRUGS (2)
  1. DIAZEPAM [Suspect]
     Indication: DRUG USE FOR UNKNOWN INDICATION
  2. HEXOBARBITAL (HEXOBARBITAL) UNKNOWN [Suspect]
     Indication: DRUG USE FOR UNKNOWN INDICATION

REACTIONS (9)
  - ACUTE RESPIRATORY FAILURE [None]
  - COMA [None]
  - DRUG HALF-LIFE INCREASED [None]
  - DRUG LEVEL ABOVE THERAPEUTIC [None]
  - DRUG TOXICITY [None]
  - HYPOTENSION [None]
  - MIOSIS [None]
  - OXYGEN SATURATION ABNORMAL [None]
  - TACHYCARDIA [None]
